FAERS Safety Report 13360656 (Version 8)
Quarter: 2017Q4

REPORT INFORMATION
  Report Type: Report from Study
  Country: US (occurrence: US)
  Receive Date: 20170322
  Receipt Date: 20171222
  Transmission Date: 20180320
  Serious: Yes (Hospitalization)
  Sender: FDA-Public Use
  Company Number: US-ACTELION-A-US2016-146665

PATIENT
  Age: 43 Year
  Sex: Female
  Weight: 79.37 kg

DRUGS (6)
  1. OMEPRAZOLE. [Concomitant]
     Active Substance: OMEPRAZOLE
     Dosage: 20 MG, UNK
     Dates: start: 20171129
  2. XANAX [Concomitant]
     Active Substance: ALPRAZOLAM
     Dosage: 0.5 MG, UNK
     Dates: start: 20171129
  3. VELETRI [Suspect]
     Active Substance: EPOPROSTENOL
     Indication: PULMONARY ARTERIAL HYPERTENSION
     Dosage: 27.4 NG/KG, PER MIN
     Route: 042
  4. WARFARIN [Concomitant]
     Active Substance: WARFARIN
  5. OPSUMIT [Suspect]
     Active Substance: MACITENTAN
     Indication: PULMONARY ARTERIAL HYPERTENSION
     Dosage: 10 MG, QD
     Route: 048
     Dates: start: 20160909
  6. CARAFATE [Concomitant]
     Active Substance: SUCRALFATE
     Dosage: 1 MG, UNK
     Dates: start: 20171129

REACTIONS (15)
  - Diarrhoea [Unknown]
  - Headache [Not Recovered/Not Resolved]
  - Influenza [Recovering/Resolving]
  - Croup infectious [Unknown]
  - Pain in extremity [Unknown]
  - Pneumonia [Unknown]
  - Pharyngitis streptococcal [Unknown]
  - Vomiting [Recovered/Resolved]
  - Fatigue [Not Recovered/Not Resolved]
  - Dyspepsia [Unknown]
  - Visual impairment [Not Recovered/Not Resolved]
  - Blood potassium decreased [Unknown]
  - Flushing [Not Recovered/Not Resolved]
  - Feeding disorder [Unknown]
  - Pain in jaw [Unknown]
